FAERS Safety Report 19921161 (Version 3)
Quarter: 2021Q4

REPORT INFORMATION
  Report Type: Spontaneous
  Country: BR (occurrence: BR)
  Receive Date: 20211005
  Receipt Date: 20211202
  Transmission Date: 20220303
  Serious: Yes (Other)
  Sender: FDA-Public Use
  Company Number: BR-SA-SAC00000000172259

PATIENT
  Age: 8 Month
  Sex: Male
  Weight: 6 kg

DRUGS (10)
  1. SABRIL [Suspect]
     Active Substance: VIGABATRIN
     Indication: Product used for unknown indication
     Dosage: 380 MG
     Route: 050
     Dates: start: 20210821, end: 20210831
  2. SABRIL [Suspect]
     Active Substance: VIGABATRIN
     Dosage: 125 UNK
     Route: 050
  3. SABRIL [Suspect]
     Active Substance: VIGABATRIN
     Dosage: 500 MG
     Route: 050
     Dates: start: 20210821, end: 20210930
  4. SABRIL [Suspect]
     Active Substance: VIGABATRIN
     Dosage: 380 MG
     Route: 065
     Dates: start: 20210830
  5. COSYNTROPIN HEXAACETATE [Suspect]
     Active Substance: COSYNTROPIN HEXAACETATE
     Indication: Product used for unknown indication
     Dosage: DOSING REGIMEN: 0.75MH - 48/48H
     Route: 030
     Dates: start: 20210822, end: 20210830
  6. GABAPENTIN [Concomitant]
     Active Substance: GABAPENTIN
     Indication: Irritability
     Dosage: 15 MG/KG
     Route: 065
  7. SYNACTHENE [TETRACOSACTIDE] [Concomitant]
     Indication: Product used for unknown indication
     Dosage: UNK
     Route: 030
  8. RISPERIDONE [Concomitant]
     Active Substance: RISPERIDONE
     Indication: Irritability
     Dosage: 0.2 MG, BID
     Route: 065
  9. CLONAZEPAM [Concomitant]
     Active Substance: CLONAZEPAM
     Indication: Irritability
     Dosage: 2 GTT DROPS
     Route: 065
  10. TOPIRAMATE [Concomitant]
     Active Substance: TOPIRAMATE
     Indication: Irritability
     Dosage: 5 MG, BID
     Route: 065

REACTIONS (6)
  - Opisthotonus [Recovered/Resolved]
  - Irritability [Recovered/Resolved]
  - Dystonia [Recovered/Resolved]
  - Off label use [Unknown]
  - Wrong technique in product usage process [Unknown]
  - Incorrect route of product administration [Unknown]

NARRATIVE: CASE EVENT DATE: 20210901
